FAERS Safety Report 9471906 (Version 1)
Quarter: 2013Q3

REPORT INFORMATION
  Report Type: Report from Study
  Country: CA (occurrence: CA)
  Receive Date: 20130823
  Receipt Date: 20130823
  Transmission Date: 20140515
  Serious: Yes (Other)
  Sender: FDA-Public Use
  Company Number: CA-ROCHE-1265100

PATIENT
  Sex: Female
  Weight: 64 kg

DRUGS (13)
  1. PEGASYS [Suspect]
     Indication: CHRONIC HEPATITIS C
     Dosage: 180 MCG/0.5 ML WEEKLY AND LAST INJECTION WAS 08-AUG-2013
     Route: 058
     Dates: end: 20130815
  2. COPEGUS [Suspect]
     Indication: CHRONIC HEPATITIS C
     Dosage: 49 TABLET/WEEK
     Route: 048
     Dates: start: 20130314, end: 20130815
  3. IRBESARTAN [Concomitant]
  4. CHLORTHALIDONE [Concomitant]
  5. LEVO-THYROXINE [Concomitant]
  6. RISEDRONATE [Concomitant]
     Indication: OSTEOPOROSIS
  7. SITAGLIPTIN [Concomitant]
  8. HUMALOG INSULIN [Concomitant]
  9. METFORMIN [Concomitant]
     Indication: DIABETES MELLITUS
     Route: 065
  10. GABAPENTIN [Concomitant]
     Indication: NEURALGIA
     Dosage: NEUROPATHIC PAIN
     Route: 065
  11. AMITRIPTYLINE [Concomitant]
  12. ROSUVASTATIN [Concomitant]
  13. NIFEDIPINE [Concomitant]

REACTIONS (2)
  - Abasia [Unknown]
  - Dehydration [Unknown]
